FAERS Safety Report 6719527-2 (Version None)
Quarter: 2010Q2

REPORT INFORMATION
  Report Type: 
  Country: None (occurrence: None)
  Receive Date: 20100507
  Receipt Date: 20100423
  Transmission Date: 20101027
  Serious: Yes (Hospitalization)
  Sender: FDA-Public Use
  Company Number: 009549

PATIENT
  Sex: Female
  Weight: 70 kg

DRUGS (8)
  1. CERTOLIZUMAB PEGOL (CDP 870) [Suspect]
     Indication: RHEUMATOID ARTHRITIS
     Dosage: (SUBCUTANEOUS)
     Route: 058
     Dates: start: 20090910, end: 20091019
  2. IBUPROFEN [Concomitant]
  3. SULFASALAZINE [Concomitant]
  4. METHOTREXATE [Concomitant]
  5. PREDNISOLONE [Concomitant]
  6. CALCIGEN D [Concomitant]
  7. VALORON N /01617301/ [Concomitant]
  8. FOLIC ACID [Concomitant]

REACTIONS (2)
  - FEMORAL ARTERIAL STENOSIS [None]
  - INFECTION [None]
